FAERS Safety Report 6607886-0 (Version None)
Quarter: 2010Q1

REPORT INFORMATION
  Report Type: 
  Country: None (occurrence: None)
  Receive Date: 20100301
  Receipt Date: 20100222
  Transmission Date: 20100710
  Serious: Yes (Death)
  Sender: FDA-Public Use
  Company Number: CHPA2010US03723

PATIENT
  Age: 78 Year
  Sex: Male

DRUGS (4)
  1. ACETYLSALICYLIC ACID SRT [Suspect]
     Route: 051
  2. WARFARIN [Suspect]
     Route: 051
  3. CLOPIDOGREL [Suspect]
     Route: 051
  4. ENOXAPARIN SODIUM [Suspect]
     Route: 051

REACTIONS (1)
  - DEATH [None]
